FAERS Safety Report 7474911-7 (Version None)
Quarter: 2011Q2

REPORT INFORMATION
  Report Type: 
  Country: None (occurrence: None)
  Receive Date: 20110512
  Receipt Date: 20080328
  Transmission Date: 20111010
  Serious: Yes (Death, Hospitalization)
  Sender: FDA-Public Use
  Company Number: US-BAYER-200818404NA

PATIENT
  Age: 79 Year
  Sex: Male
  Weight: 79 kg

DRUGS (15)
  1. TRASYLOL [Suspect]
  2. ANCEF [Concomitant]
     Dosage: 1 G, UNK
     Route: 042
     Dates: start: 20060321, end: 20060321
  3. TRASYLOL [Suspect]
     Indication: CORONARY ARTERY BYPASS
     Dosage: 1 ML, INITIAL TEST DOSE
     Route: 042
     Dates: start: 20060321, end: 20060321
  4. LASIX [Concomitant]
     Dosage: 10 MG EVERY 4 HOURS
     Route: 042
     Dates: start: 20060321
  5. ATENOLOL [Concomitant]
     Dosage: 25 MG, QD, LONG TERM
     Route: 048
  6. STARLIX [Concomitant]
     Dosage: 120 MG, BID
     Route: 048
  7. TRASYLOL [Suspect]
     Indication: HIGH FREQUENCY ABLATION
     Dosage: 25ML / HOUR INFUSION
     Route: 042
     Dates: start: 20060321, end: 20060321
  8. LABETALOL [Concomitant]
     Dosage: 20 MG
     Route: 042
     Dates: start: 20060321, end: 20060321
  9. DIGOXIN [Concomitant]
     Dosage: 0.125 MG ALTERNATING WITH 0.250 MG DAILY
     Route: 048
  10. FLOMAX [Concomitant]
     Dosage: 0.4 MG, QD
     Route: 048
  11. ALBUMIN [ALBUMEN] [Concomitant]
     Dosage: 500 ML
     Route: 042
     Dates: start: 20060321, end: 20060321
  12. NITROGLYCERIN [Concomitant]
     Dosage: 5-15 MCG/MINUTE
     Route: 042
     Dates: start: 20060321
  13. TRASYLOL [Suspect]
     Indication: AORTIC VALVE REPLACEMENT
     Dosage: 1 BOTTLE OVER 20 MINUTES, LOADING DOSE
     Route: 042
     Dates: start: 20060321, end: 20060321
  14. INSULIN HUMAN [Concomitant]
     Dosage: 2 +#8211; 6 UNITS / HOUR
     Route: 042
     Dates: start: 20060321
  15. COUMADIN [Concomitant]
     Dosage: 4MG - 5 MG DAILY
     Route: 048

REACTIONS (8)
  - ANXIETY [None]
  - SCAR [None]
  - INJURY [None]
  - ANHEDONIA [None]
  - LIFE EXPECTANCY SHORTENED [None]
  - RENAL FAILURE [None]
  - PAIN [None]
  - DISABILITY [None]
